FAERS Safety Report 7812049-7 (Version None)
Quarter: 2011Q4

REPORT INFORMATION
  Report Type: 
  Country: None (occurrence: None)
  Receive Date: 20111011
  Receipt Date: 20110922
  Transmission Date: 20120403
  Serious: Yes (Death, Hospitalization)
  Sender: FDA-Public Use
  Company Number: DSA_47698_2011

PATIENT
  Age: 82 Year
  Sex: Female

DRUGS (2)
  1. ENALAPRIL MALEATE [Suspect]
     Indication: PRODUCT USED FOR UNKNOWN INDICATION
     Dosage: 10/25 ONCE ORAL
     Route: 048
     Dates: start: 20090502
  2. ENALAPRIL MALEATE [Suspect]
     Indication: PRODUCT USED FOR UNKNOWN INDICATION
     Dosage: 2.5 MG QD ORAL
     Route: 048

REACTIONS (3)
  - DYSPNOEA [None]
  - DRUG DISPENSING ERROR [None]
  - ANAPHYLACTIC SHOCK [None]
